FAERS Safety Report 7583240-2 (Version None)
Quarter: 2011Q2

REPORT INFORMATION
  Report Type: 
  Country: None (occurrence: None)
  Receive Date: 20110630
  Receipt Date: 20110622
  Transmission Date: 20111010
  Serious: Yes (Other)
  Sender: FDA-Public Use
  Company Number: US-ACTELION-A-US2011-50092

PATIENT

DRUGS (4)
  1. FUROSEMIDE [Concomitant]
  2. TRACLEER [Suspect]
     Indication: PULMONARY ARTERIAL HYPERTENSION
     Dosage: 62.5 MG, BID
     Route: 048
     Dates: start: 20110221, end: 20110511
  3. PLAVIX [Concomitant]
     Indication: PULMONARY ARTERIAL HYPERTENSION
  4. TRACLEER [Suspect]
     Dosage: 125 MG, BID
     Route: 048
     Dates: end: 20110101

REACTIONS (2)
  - PLEURAL EFFUSION [None]
  - OEDEMA PERIPHERAL [None]
